FAERS Safety Report 20661645 (Version 1)
Quarter: 2022Q2

REPORT INFORMATION
  Report Type: Other
  Country: US (occurrence: None)
  Receive Date: 20220401
  Receipt Date: 20220401
  Transmission Date: 20220721
  Serious: Yes (Death)
  Sender: FDA-Public Use
  Company Number: US-ROCHE-3064500

PATIENT
  Age: 41 Year
  Sex: Female

DRUGS (4)
  1. RITUXIMAB [Suspect]
     Active Substance: RITUXIMAB
     Indication: B-cell small lymphocytic lymphoma
     Dosage: FOR 4 WEEKS
     Route: 065
  2. IBRUTINIB [Suspect]
     Active Substance: IBRUTINIB
     Indication: B-cell small lymphocytic lymphoma
     Route: 065
  3. IBRUTINIB [Suspect]
     Active Substance: IBRUTINIB
     Route: 065
  4. IBRUTINIB [Suspect]
     Active Substance: IBRUTINIB
     Route: 065

REACTIONS (2)
  - Escherichia sepsis [Fatal]
  - Acute kidney injury [Fatal]
